FAERS Safety Report 17904198 (Version 1)
Quarter: 2020Q2

REPORT INFORMATION
  Report Type: Spontaneous
  Country: US (occurrence: US)
  Receive Date: 20200617
  Receipt Date: 20200617
  Transmission Date: 20200714
  Serious: No
  Sender: FDA-Public Use
  Company Number: US-AUROBINDO-AUR-APL-2020-000499

PATIENT
  Age: 13 Year
  Sex: Male

DRUGS (2)
  1. CLINDAMYCIN PALMITATE HYDROCHLORIDE FOR ORAL SOLUTION USP(PEDIATRIC) [Suspect]
     Active Substance: CLINDAMYCIN PALMITATE HYDROCHLORIDE
     Indication: GLOSSITIS
  2. CLINDAMYCIN PALMITATE HYDROCHLORIDE FOR ORAL SOLUTION USP(PEDIATRIC) [Suspect]
     Active Substance: CLINDAMYCIN PALMITATE HYDROCHLORIDE
     Indication: COLITIS
     Dosage: 20 MILLILITER, 3 TIMES A DAY
     Route: 065
     Dates: start: 20191224, end: 20191230

REACTIONS (2)
  - Gingival bleeding [Recovered/Resolved]
  - Product quality issue [Unknown]

NARRATIVE: CASE EVENT DATE: 20191230
